FAERS Safety Report 5916961-5 (Version None)
Quarter: 2008Q4

REPORT INFORMATION
  Report Type: 
  Country: None (occurrence: None)
  Receive Date: 20081013
  Receipt Date: 20080930
  Transmission Date: 20090506
  Serious: Yes (Death)
  Sender: FDA-Public Use
  Company Number: US-ASTRAZENECA-2008AP07781

PATIENT
  Age: 79 Year
  Sex: Female

DRUGS (1)
  1. ZESTRIL [Suspect]
     Route: 048
     Dates: start: 20011001

REACTIONS (1)
  - GASTROINTESTINAL HAEMORRHAGE [None]
